FAERS Safety Report 17305386 (Version 1)
Quarter: 2020Q1

REPORT INFORMATION
  Report Type: Spontaneous
  Country: US (occurrence: US)
  Receive Date: 20200123
  Receipt Date: 20200123
  Transmission Date: 20200409
  Serious: Yes (Hospitalization, Other)
  Sender: FDA-Public Use
  Company Number: US-MYLANLABS-2020M1007455

PATIENT
  Age: 73 Year
  Sex: Female

DRUGS (8)
  1. AZITHROMYCIN ANHYDROUS. [Suspect]
     Active Substance: AZITHROMYCIN ANHYDROUS
     Indication: BABESIOSIS
     Dosage: UNK
     Route: 065
  2. DOXYCYCLINE. [Suspect]
     Active Substance: DOXYCYCLINE
     Indication: BABESIOSIS
     Dosage: 100 MILLIGRAM
     Route: 048
  3. AZITHROMYCIN ANHYDROUS. [Suspect]
     Active Substance: AZITHROMYCIN ANHYDROUS
     Indication: BABESIOSIS
     Dosage: LOADING DOSE
     Route: 048
  4. QUININE [Suspect]
     Active Substance: QUININE
     Indication: BABESIOSIS
     Dosage: THREE TIMES DAILY
     Route: 048
  5. AZITHROMYCIN ANHYDROUS. [Suspect]
     Active Substance: AZITHROMYCIN ANHYDROUS
     Dosage: 250 MILLIGRAM, QD
     Route: 048
  6. CLINDAMYCIN. [Suspect]
     Active Substance: CLINDAMYCIN
     Indication: BABESIOSIS
     Route: 065
  7. CLINDAMYCIN. [Suspect]
     Active Substance: CLINDAMYCIN
     Indication: BABESIOSIS
     Dosage: THREE TIMES DAILY
     Route: 042
  8. ATOVAQUONE. [Suspect]
     Active Substance: ATOVAQUONE
     Indication: BABESIOSIS
     Dosage: 750 MILLIGRAM
     Route: 048

REACTIONS (2)
  - Deafness [Unknown]
  - Treatment failure [Unknown]
